FAERS Safety Report 21316074 (Version 5)
Quarter: 2023Q1

REPORT INFORMATION
  Report Type: Report from Study
  Country: CN (occurrence: None)
  Receive Date: 20220910
  Receipt Date: 20230328
  Transmission Date: 20230418
  Serious: Yes (Hospitalization)
  Sender: FDA-Public Use
  Company Number: CN-ROCHE-3174851

PATIENT
  Age: 58 Year
  Sex: Male
  Weight: 72 kg

DRUGS (55)
  1. ATEZOLIZUMAB [Suspect]
     Active Substance: ATEZOLIZUMAB
     Indication: Hepatocellular carcinoma
     Dosage: DATE OF MOST RECENT DOSE OF ATEZOLIZUMAB PRIOR TO ONSET OF AE :11/AUG/2022?DATE OF MOST RECENT DOSE
     Route: 041
     Dates: start: 20220412, end: 20220908
  2. BEVACIZUMAB [Suspect]
     Active Substance: BEVACIZUMAB
     Indication: Hepatocellular carcinoma
     Dosage: DATE OF MOST RECENT DOSE OF BEVACIZUMAB PRIOR TO ONSET OF AE :11/AUG/2022?DATE OF MOST RECENT DOSE O
     Route: 041
     Dates: start: 20220412, end: 20220908
  3. PIRARUBICIN [Suspect]
     Active Substance: PIRARUBICIN
     Indication: Hepatocellular carcinoma
     Route: 065
  4. ENTECAVIR [Concomitant]
     Active Substance: ENTECAVIR
     Dosage: TOTAL DAILY DOSE:0.5MG
     Dates: start: 20220308
  5. TENOFOVIR ALAFENAMIDE FUMARATE [Concomitant]
     Active Substance: TENOFOVIR ALAFENAMIDE FUMARATE
     Dosage: TOTAL DAILY DOSE:25MG
     Dates: start: 20220317
  6. HERBALS\DIAMMONIUM GLYCYRRHIZINATE [Concomitant]
     Active Substance: HERBALS\DIAMMONIUM GLYCYRRHIZINATE
     Dosage: TOTAL DAILY DOSE:150MG?ENTERIC COATED CAPSULES
     Dates: start: 20220406
  7. HERBALS\DIAMMONIUM GLYCYRRHIZINATE [Concomitant]
     Active Substance: HERBALS\DIAMMONIUM GLYCYRRHIZINATE
     Dates: start: 20221115
  8. POTASSIUM CITRATE [Concomitant]
     Active Substance: POTASSIUM CITRATE
     Dosage: TOTAL DAILY DOSE:1 OTHER
     Dates: start: 20220610
  9. PANTOPRAZOLE SODIUM [Concomitant]
     Active Substance: PANTOPRAZOLE SODIUM
     Dosage: TOTAL DAILY DOSE:40MG?ENTERIC COATED TABLETS
     Dates: start: 20220712
  10. HYDROTALCITE [Concomitant]
     Active Substance: HYDROTALCITE
     Dosage: TOTAL DAILY DOSE:1 G
     Dates: start: 20220718
  11. MOSAPRIDE CITRATE [Concomitant]
     Active Substance: MOSAPRIDE CITRATE
     Dosage: TOTAL DAILY DOSE:5MG
     Dates: start: 20220718
  12. AMLODIPINE BESYLATE [Concomitant]
     Active Substance: AMLODIPINE BESYLATE
     Dosage: TOTAL DAILY DOSE:5MG
     Dates: start: 20220807
  13. HYDROCHLOROTHIAZIDE [Concomitant]
     Active Substance: HYDROCHLOROTHIAZIDE
     Dates: start: 20221021
  14. HYDROCHLOROTHIAZIDE [Concomitant]
     Active Substance: HYDROCHLOROTHIAZIDE
     Dates: start: 20220906, end: 20220908
  15. SPIRONOLACTONE [Concomitant]
     Active Substance: SPIRONOLACTONE
     Dates: start: 20221021
  16. POTASSIUM CITRATE [Concomitant]
     Active Substance: POTASSIUM CITRATE
  17. MAGNESIUM ISOGLYCYRRHIZINATE [Concomitant]
     Active Substance: MAGNESIUM ISOGLYCYRRHIZINATE
     Dates: start: 20221006, end: 20221011
  18. BUDESONIDE [Concomitant]
     Active Substance: BUDESONIDE
     Dates: start: 20221006, end: 20221115
  19. POTASSIUM CHLORIDE [Concomitant]
     Active Substance: POTASSIUM CHLORIDE
     Dates: start: 20221008, end: 20221008
  20. POTASSIUM CHLORIDE [Concomitant]
     Active Substance: POTASSIUM CHLORIDE
     Dates: start: 20221114, end: 20221115
  21. POTASSIUM CHLORIDE\SODIUM CHLORIDE [Concomitant]
     Active Substance: POTASSIUM CHLORIDE\SODIUM CHLORIDE
     Dates: start: 20221008, end: 20221008
  22. SODIUM CHLORIDE [Concomitant]
     Active Substance: SODIUM CHLORIDE
     Dates: start: 20221008, end: 20221031
  23. PIPERACILLIN SODIUM\TAZOBACTAM SODIUM [Concomitant]
     Active Substance: PIPERACILLIN SODIUM\TAZOBACTAM SODIUM
     Dates: start: 20221009, end: 20221016
  24. TAMSULOSIN HYDROCHLORIDE [Concomitant]
     Active Substance: TAMSULOSIN HYDROCHLORIDE
  25. COMPOUND GLYCYRRHIZA ORAL SOLUTION [Concomitant]
     Dates: start: 20221016, end: 20221023
  26. AMBROXOL HYDROCHLORIDE [Concomitant]
     Active Substance: AMBROXOL HYDROCHLORIDE
     Dates: start: 20221016, end: 20221115
  27. AMBROXOL HYDROCHLORIDE [Concomitant]
     Active Substance: AMBROXOL HYDROCHLORIDE
     Dates: start: 20221007, end: 20221115
  28. AMMONIUM GLYCYRRHIZATE\CYSTEINE [Concomitant]
     Active Substance: AMMONIUM GLYCYRRHIZATE\CYSTEINE
     Dates: start: 20221019, end: 20221115
  29. CEFOPERAZONE SODIUM\SULBACTAM SODIUM [Concomitant]
     Active Substance: CEFOPERAZONE SODIUM\SULBACTAM SODIUM
     Dates: start: 20221022, end: 20221031
  30. VONOPRAZAN FUMARATE [Concomitant]
     Active Substance: VONOPRAZAN FUMARATE
     Dates: start: 20221025
  31. VANCOMYCIN HYDROCHLORIDE [Concomitant]
     Active Substance: VANCOMYCIN HYDROCHLORIDE
     Dates: start: 20221025, end: 20221101
  32. ESTAZOLAM [Concomitant]
     Active Substance: ESTAZOLAM
     Dates: start: 20221104
  33. FUROSEMIDE [Concomitant]
     Active Substance: FUROSEMIDE
     Dates: start: 20221025, end: 20221108
  34. INDOMETHACIN [Concomitant]
     Active Substance: INDOMETHACIN
     Dates: start: 20221006, end: 20221023
  35. DEZOCINE [Concomitant]
     Active Substance: DEZOCINE
     Dates: start: 20221008, end: 20221009
  36. ASPIRIN DL-LYSINE [Concomitant]
     Active Substance: ASPIRIN DL-LYSINE
     Dates: start: 20221021, end: 20221101
  37. TOLVAPTAN [Concomitant]
     Active Substance: TOLVAPTAN
     Dates: start: 20221028, end: 20221113
  38. COMPOUND MANNITOL [Concomitant]
     Dates: start: 20221030, end: 20221030
  39. ACETYLCYSTEINE [Concomitant]
     Active Substance: ACETYLCYSTEINE
  40. DEXAMETHASONE SODIUM PHOSPHATE [Concomitant]
     Active Substance: DEXAMETHASONE SODIUM PHOSPHATE
     Dates: start: 20221108, end: 20221111
  41. ENOXAPARIN SODIUM [Concomitant]
     Active Substance: ENOXAPARIN SODIUM
     Dates: start: 20221108, end: 20221108
  42. ENOXAPARIN SODIUM [Concomitant]
     Active Substance: ENOXAPARIN SODIUM
     Dates: start: 20221111, end: 20221111
  43. MANNITOL [Concomitant]
     Active Substance: MANNITOL
     Dates: start: 20221109, end: 20221109
  44. ZOLPIDEM TARTRATE [Concomitant]
     Active Substance: ZOLPIDEM TARTRATE
     Dates: start: 20221108, end: 20221108
  45. ZOLPIDEM TARTRATE [Concomitant]
     Active Substance: ZOLPIDEM TARTRATE
     Dates: start: 20221111, end: 20221111
  46. PEGYLATED RECOMBINANT HUMAN GRANULOCYTE COLONY-STIMULATING FACTOR [Concomitant]
     Dates: start: 20221112, end: 20221112
  47. PEGYLATED RECOMBINANT HUMAN GRANULOCYTE COLONY-STIMULATING FACTOR [Concomitant]
     Dates: start: 20220907, end: 20220907
  48. SODIUM BICARBONATE [Concomitant]
     Active Substance: SODIUM BICARBONATE
     Dates: start: 20221114, end: 20221114
  49. HERBALS\DIAMMONIUM GLYCYRRHIZINATE [Concomitant]
     Active Substance: HERBALS\DIAMMONIUM GLYCYRRHIZINATE
     Dates: start: 20221115
  50. PARECOXIB SODIUM [Concomitant]
     Active Substance: PARECOXIB SODIUM
     Dates: start: 20220906, end: 20220908
  51. LEUCOGEN (CHINA) [Concomitant]
     Dates: start: 20220908, end: 20220914
  52. AVATROMBOPAG [Concomitant]
     Active Substance: AVATROMBOPAG
     Dates: start: 20220902, end: 20220906
  53. IPRATROPIUM BROMIDE [Concomitant]
     Active Substance: IPRATROPIUM BROMIDE
     Dates: start: 20221007, end: 20221115
  54. TORSEMIDE [Concomitant]
     Active Substance: TORSEMIDE
     Dates: start: 20221006, end: 20221009
  55. LACTULOSE [Concomitant]
     Active Substance: LACTULOSE
     Dates: start: 20221028, end: 20221028

REACTIONS (2)
  - Biliary cyst [Recovering/Resolving]
  - Jaundice cholestatic [Not Recovered/Not Resolved]

NARRATIVE: CASE EVENT DATE: 20220905
